FAERS Safety Report 14872979 (Version 6)
Quarter: 2019Q1

REPORT INFORMATION
  Report Type: Report from Study
  Country: US (occurrence: US)
  Receive Date: 20180510
  Receipt Date: 20190119
  Transmission Date: 20190417
  Serious: Yes (Hospitalization)
  Sender: FDA-Public Use
  Company Number: US-ROCHE-2117219

PATIENT
  Age: 69 Year
  Sex: Female
  Weight: 60.8 kg

DRUGS (20)
  1. ATEZOLIZUMAB. [Suspect]
     Active Substance: ATEZOLIZUMAB
     Indication: COLORECTAL CANCER
     Dosage: HER LAST DOSE OF ATEZOLIZUMAB PRIOR TO THE EVENT WAS ON 29/MAR/2018
     Route: 042
     Dates: start: 20180329, end: 20180329
  2. HYDROMORPHONE HCL [Concomitant]
     Active Substance: HYDROMORPHONE HYDROCHLORIDE
     Route: 065
     Dates: start: 20180315, end: 20180406
  3. MIRALAX [Concomitant]
     Active Substance: POLYETHYLENE GLYCOL 3350
     Route: 065
     Dates: start: 20180402, end: 20180406
  4. TRAMADOL. [Concomitant]
     Active Substance: TRAMADOL
     Route: 065
     Dates: start: 20180406
  5. LIDOCAINE. [Concomitant]
     Active Substance: LIDOCAINE
  6. MELATONIN [Concomitant]
     Active Substance: MELATONIN
  7. OXYCODONE [Concomitant]
     Active Substance: OXYCODONE
  8. PANTOPRAZOLE [Concomitant]
     Active Substance: PANTOPRAZOLE
  9. TALIMOGENE LAHERPAREPVEC [Suspect]
     Active Substance: TALIMOGENE LAHERPAREPVEC
     Indication: COLORECTAL CANCER
     Dosage: HER LAST DOSE OF TALIMOGENE LAHERPAREPVEC PRIOR TO THE EVENT WAS ON 29/MAR/2018
     Route: 026
     Dates: start: 20180329, end: 20180329
  10. ZOLOFT [Concomitant]
     Active Substance: SERTRALINE HYDROCHLORIDE
     Route: 065
     Dates: start: 20171127
  11. ATORVASTATIN [Concomitant]
     Active Substance: ATORVASTATIN
     Route: 065
     Dates: start: 20180123
  12. ACETAMINOPHEN. [Concomitant]
     Active Substance: ACETAMINOPHEN
     Route: 065
     Dates: start: 20180330, end: 20180330
  13. BISACODYL. [Concomitant]
     Active Substance: BISACODYL
     Route: 065
     Dates: start: 20180406, end: 20180424
  14. LACTULOSE. [Concomitant]
     Active Substance: LACTULOSE
  15. FENTANYL. [Concomitant]
     Active Substance: FENTANYL
     Route: 065
     Dates: start: 20180406
  16. TYLENOL [Concomitant]
     Active Substance: ACETAMINOPHEN
     Route: 065
     Dates: start: 201803
  17. SERTRALINE [Concomitant]
     Active Substance: SERTRALINE HYDROCHLORIDE
  18. NORMAL SALINE [Concomitant]
     Active Substance: SODIUM CHLORIDE
     Route: 065
     Dates: start: 20180330, end: 20180330
  19. POTASSIUM CHLORIDE. [Concomitant]
     Active Substance: POTASSIUM CHLORIDE
  20. SENNA [Concomitant]
     Active Substance: SENNA LEAF\SENNOSIDES\SENNOSIDES A AND B

REACTIONS (1)
  - Platelet count decreased [Recovered/Resolved]

NARRATIVE: CASE EVENT DATE: 20180419
